FAERS Safety Report 12171577 (Version 1)
Quarter: 2016Q1

REPORT INFORMATION
  Report Type: Spontaneous
  Country: US (occurrence: US)
  Receive Date: 20160311
  Receipt Date: 20160311
  Transmission Date: 20160526
  Serious: Yes (Other)
  Sender: FDA-Public Use
  Company Number: US-JNJFOC-20160303132

PATIENT

DRUGS (1)
  1. HALOPERIDOL. [Suspect]
     Active Substance: HALOPERIDOL
     Indication: DELIRIUM
     Route: 042

REACTIONS (7)
  - Electrocardiogram QT prolonged [Unknown]
  - Delirium [Unknown]
  - Hypotension [Unknown]
  - Product use issue [Unknown]
  - Off label use [Unknown]
  - Sedation [Unknown]
  - Extrapyramidal disorder [Unknown]
